FAERS Safety Report 4269832-7 (Version None)
Quarter: 2004Q1

REPORT INFORMATION
  Report Type: 
  Country: None (occurrence: None)
  Receive Date: 20040112
  Receipt Date: 20031230
  Transmission Date: 20041129
  Serious: Yes (Death, Hospitalization)
  Sender: FDA-Public Use
  Company Number: HQWYE471304JUN03

PATIENT
  Age: 80 Year
  Sex: Male
  Weight: 68.1 kg

DRUGS (1)
  1. CORDARONE [Suspect]
     Indication: ARRHYTHMIA
     Dates: start: 20001112, end: 20011101

REACTIONS (11)
  - CARDIAC FAILURE CONGESTIVE [None]
  - HYPERTENSION [None]
  - INTERSTITIAL LUNG DISEASE [None]
  - LUNG DISORDER [None]
  - LUNG INJURY [None]
  - PERICARDIAL EFFUSION [None]
  - RENAL FAILURE [None]
  - RESPIRATORY ARREST [None]
  - UPPER RESPIRATORY TRACT INFECTION [None]
  - VENTRICULAR FIBRILLATION [None]
  - VIRAL INFECTION [None]
